FAERS Safety Report 4713527-X (Version None)
Quarter: 2005Q3

REPORT INFORMATION
  Report Type: 
  Country: None (occurrence: None)
  Receive Date: 20050713
  Receipt Date: 20050705
  Transmission Date: 20060218
  Serious: Yes (Hospitalization, Other)
  Sender: FDA-Public Use
  Company Number: JP-JNJFOC-20050507448

PATIENT
  Age: 41 Year
  Sex: Female

DRUGS (3)
  1. RISPERDAL [Suspect]
     Indication: SCHIZOPHRENIA
     Route: 049
  2. SENNOSIDE [Concomitant]
     Indication: CONSTIPATION
     Route: 049
  3. FERROUS SULFATE TAB [Concomitant]
     Indication: ANAEMIA
     Route: 049

REACTIONS (1)
  - LEUKOPENIA [None]
